FAERS Safety Report 18196767 (Version 2)
Quarter: 2020Q3

REPORT INFORMATION
  Report Type: Spontaneous
  Country: US (occurrence: US)
  Receive Date: 20200826
  Receipt Date: 20200917
  Transmission Date: 20201103
  Serious: Yes (Death, Hospitalization, Other)
  Sender: FDA-Public Use
  Company Number: US-COHERUS BIOSCIENCES, INC-2020US004607

PATIENT

DRUGS (3)
  1. UDENYCA [Suspect]
     Active Substance: PEGFILGRASTIM-CBQV
     Indication: INFECTION PROPHYLAXIS
     Dosage: UNK
     Dates: start: 20200722, end: 20200722
  2. TAXOL [Concomitant]
     Active Substance: PACLITAXEL
     Dosage: UNK
     Dates: start: 20200803
  3. CARBOPLATIN. [Concomitant]
     Active Substance: CARBOPLATIN
     Dosage: UNK
     Dates: start: 20200803, end: 20200803

REACTIONS (3)
  - Pneumonia [Unknown]
  - Respiratory failure [Fatal]
  - Pleural effusion [Fatal]

NARRATIVE: CASE EVENT DATE: 2020
